FAERS Safety Report 12012997 (Version 2)
Quarter: 2016Q1

REPORT INFORMATION
  Report Type: Spontaneous
  Country: US (occurrence: US)
  Receive Date: 20160205
  Receipt Date: 20160318
  Transmission Date: 20160526
  Serious: Yes (Other)
  Sender: FDA-Public Use
  Company Number: US-ASTRAZENECA-2016SE10700

PATIENT

DRUGS (1)
  1. CRESTOR [Suspect]
     Active Substance: ROSUVASTATIN CALCIUM
     Indication: PRODUCT USED FOR UNKNOWN INDICATION
     Route: 048

REACTIONS (7)
  - Loss of consciousness [Unknown]
  - Pain [Unknown]
  - General physical condition abnormal [Unknown]
  - Dizziness [Unknown]
  - Pain in extremity [Unknown]
  - Gait disturbance [Unknown]
  - Muscular weakness [Unknown]

NARRATIVE: CASE EVENT DATE: 2014
